FAERS Safety Report 24014342 (Version 1)
Quarter: 2024Q2

REPORT INFORMATION
  Report Type: Spontaneous
  Country: CN (occurrence: None)
  Receive Date: 20240626
  Receipt Date: 20240626
  Transmission Date: 20240716
  Serious: Yes (Other)
  Sender: FDA-Public Use
  Company Number: CN-Unichem Pharmaceuticals (USA) Inc-UCM202406-000768

PATIENT

DRUGS (6)
  1. TADALAFIL [Suspect]
     Active Substance: TADALAFIL
     Indication: Product used for unknown indication
     Dosage: UNKNOWN
  2. SILDENAFIL [Suspect]
     Active Substance: SILDENAFIL
     Indication: Product used for unknown indication
     Dosage: UNKNOWN
  3. CHLOROPRETADALAFIL [Suspect]
     Active Substance: CHLOROPRETADALAFIL
     Indication: Product used for unknown indication
     Dosage: UNKNOWN
  4. ACETAMINOPHEN [Suspect]
     Active Substance: ACETAMINOPHEN
     Indication: Product used for unknown indication
     Dosage: UNKNOWN
  5. DICLOFENAC [Suspect]
     Active Substance: DICLOFENAC
     Indication: Product used for unknown indication
     Dosage: UNKNOWN
  6. PALMATINE CHLORIDE [Suspect]
     Active Substance: PALMATINE CHLORIDE
     Indication: Product used for unknown indication
     Dosage: UNKNOWN

REACTIONS (4)
  - Multiple organ dysfunction syndrome [Unknown]
  - Poisoning [Unknown]
  - Adulterated product [Unknown]
  - Overdose [Unknown]
